FAERS Safety Report 14154453 (Version 1)
Quarter: 2017Q4

REPORT INFORMATION
  Report Type: Report from Study
  Country: US (occurrence: US)
  Receive Date: 20171102
  Receipt Date: 20171102
  Transmission Date: 20180321
  Serious: Yes (Death)
  Sender: FDA-Public Use
  Company Number: US-EXELIXIS-CABO-17011071

PATIENT
  Sex: Male

DRUGS (23)
  1. CALCIUM CARBONATE. [Concomitant]
     Active Substance: CALCIUM CARBONATE
  2. ACETAMINOPHEN. [Concomitant]
     Active Substance: ACETAMINOPHEN
  3. TAMSULOSIN [Concomitant]
     Active Substance: TAMSULOSIN
  4. ROSUVASTATIN. [Concomitant]
     Active Substance: ROSUVASTATIN
  5. VITAMIN C [Concomitant]
     Active Substance: ASCORBIC ACID
  6. LACTOBACILLUS [Concomitant]
     Active Substance: LACTOBACILLUS ACIDOPHILUS
  7. DOCUSATE SODIUM. [Concomitant]
     Active Substance: DOCUSATE SODIUM
  8. DEXAMETHASONE. [Concomitant]
     Active Substance: DEXAMETHASONE
  9. EZETIMIBE. [Concomitant]
     Active Substance: EZETIMIBE
  10. PANTOPRAZOLE [Concomitant]
     Active Substance: PANTOPRAZOLE
  11. TRAMADOL. [Concomitant]
     Active Substance: TRAMADOL
  12. BIOTIN [Concomitant]
     Active Substance: BIOTIN
  13. MELATONIN [Concomitant]
     Active Substance: MELATONIN
  14. NITROSTAT [Concomitant]
     Active Substance: NITROGLYCERIN
  15. PRASUGREL. [Concomitant]
     Active Substance: PRASUGREL
  16. METOPROLOL TARTRATE. [Concomitant]
     Active Substance: METOPROLOL TARTRATE
  17. DULOXETINE. [Concomitant]
     Active Substance: DULOXETINE
  18. CYANOCOBALAMIN. [Concomitant]
     Active Substance: CYANOCOBALAMIN
  19. MULTIVITAMINS [Concomitant]
     Active Substance: VITAMINS
  20. CABOMETYX [Suspect]
     Active Substance: CABOZANTINIB S-MALATE
     Indication: RENAL CANCER
     Dosage: 40 MG, QD
     Route: 048
     Dates: start: 20170101, end: 201706
  21. ONDANSETRON [Concomitant]
     Active Substance: ONDANSETRON
  22. ASPIRIN. [Concomitant]
     Active Substance: ASPIRIN
  23. CHOLECALCIFEROL [Concomitant]
     Active Substance: CHOLECALCIFEROL

REACTIONS (1)
  - Death [Fatal]
